FAERS Safety Report 24382238 (Version 4)
Quarter: 2025Q2

REPORT INFORMATION
  Report Type: Spontaneous
  Country: US (occurrence: US)
  Receive Date: 20241001
  Receipt Date: 20250618
  Transmission Date: 20250716
  Serious: Yes (Death, Hospitalization, Other)
  Sender: SANOFI AVENTIS
  Company Number: US-SA-2024SA279933

PATIENT
  Age: 81 Year
  Sex: Female

DRUGS (41)
  1. DUPIXENT [Suspect]
     Active Substance: DUPILUMAB
     Indication: Dermatitis atopic
     Dosage: 300 MG, Q10D
     Route: 058
     Dates: start: 202209
  2. DUPIXENT [Suspect]
     Active Substance: DUPILUMAB
     Dosage: 300 MG, QOW
     Route: 058
  3. DUPIXENT [Suspect]
     Active Substance: DUPILUMAB
     Indication: Dermatitis atopic
     Route: 058
     Dates: start: 20220818, end: 20220818
  4. TRADJENTA [Concomitant]
     Active Substance: LINAGLIPTIN
  5. KIONEX [Concomitant]
     Active Substance: SODIUM POLYSTYRENE SULFONATE
  6. DAPTOMYCIN [Concomitant]
     Active Substance: DAPTOMYCIN
  7. TRIAMCINOLONE ACETONIDE [Concomitant]
     Active Substance: TRIAMCINOLONE ACETONIDE
  8. BENZONATATE [Concomitant]
     Active Substance: BENZONATATE
  9. PREMARIN [Concomitant]
     Active Substance: ESTROGENS, CONJUGATED
  10. NYSTATIN [Concomitant]
     Active Substance: NYSTATIN
  11. ANASTROZOLE [Concomitant]
     Active Substance: ANASTROZOLE
  12. IRON [Concomitant]
     Active Substance: IRON
  13. ALBUTEROL SULFATE [Concomitant]
     Active Substance: ALBUTEROL SULFATE
  14. HALOPERIDOL [Concomitant]
     Active Substance: HALOPERIDOL
  15. TEMAZEPAM [Concomitant]
     Active Substance: TEMAZEPAM
  16. ACETAMINOPHEN AND CODEINE [Concomitant]
     Active Substance: ACETAMINOPHEN\CODEINE PHOSPHATE
  17. LOPERAMIDE [Concomitant]
     Active Substance: LOPERAMIDE
  18. INSULIN ASPART [Concomitant]
     Active Substance: INSULIN ASPART
  19. CHLORHEXIDINE [Concomitant]
     Active Substance: CHLORHEXIDINE
  20. MORPHINE [Concomitant]
     Active Substance: MORPHINE
  21. PANTOPRAZOLE [Concomitant]
     Active Substance: PANTOPRAZOLE
  22. LATANOPROST [Concomitant]
     Active Substance: LATANOPROST
  23. LANTUS SOLOSTAR [Concomitant]
     Active Substance: INSULIN GLARGINE
  24. METHENAMINE HIPPURATE [Concomitant]
     Active Substance: METHENAMINE HIPPURATE
  25. DONEPEZIL [Concomitant]
     Active Substance: DONEPEZIL
  26. POLYETHYLENE GLYCOL 3350 [Concomitant]
     Active Substance: POLYETHYLENE GLYCOL 3350
  27. ONDANSETRON [Concomitant]
     Active Substance: ONDANSETRON
  28. IPRATROPIUM BROMIDE [Concomitant]
     Active Substance: IPRATROPIUM BROMIDE
  29. FLUTICASONE PROPIONATE [Concomitant]
     Active Substance: FLUTICASONE PROPIONATE
  30. BETAMETHASONE DIPROPIONATE [Concomitant]
     Active Substance: BETAMETHASONE DIPROPIONATE
     Dosage: 0.050% BID
     Route: 061
  31. MONTELUKAST [Concomitant]
     Active Substance: MONTELUKAST
  32. AMLODIPINE [Concomitant]
     Active Substance: AMLODIPINE BESYLATE
  33. VENLAFAXINE [Concomitant]
     Active Substance: VENLAFAXINE HYDROCHLORIDE
  34. TRAZODONE [Concomitant]
     Active Substance: TRAZODONE HYDROCHLORIDE
  35. ADVAIR HFA [Concomitant]
     Active Substance: FLUTICASONE PROPIONATE\SALMETEROL XINAFOATE
  36. LORAZEPAM [Concomitant]
     Active Substance: LORAZEPAM
  37. ATORVASTATIN [Concomitant]
     Active Substance: ATORVASTATIN
  38. PROPRANOLOL [Concomitant]
     Active Substance: PROPRANOLOL HYDROCHLORIDE
  39. TRAVOPROST [Concomitant]
     Active Substance: TRAVOPROST
  40. CETIRIZINE [Concomitant]
     Active Substance: CETIRIZINE HYDROCHLORIDE
  41. GABAPENTIN [Concomitant]
     Active Substance: GABAPENTIN

REACTIONS (4)
  - Death [Fatal]
  - Pneumonia [Unknown]
  - Cardiac failure congestive [Unknown]
  - Off label use [Unknown]

NARRATIVE: CASE EVENT DATE: 20240901
